FAERS Safety Report 4539610-X (Version None)
Quarter: 2004Q4

REPORT INFORMATION
  Report Type: 
  Country: None (occurrence: None)
  Receive Date: 20041228
  Receipt Date: 20041217
  Transmission Date: 20050328
  Serious: Yes (Other)
  Sender: FDA-Public Use
  Company Number: PHRM2004FR03743

PATIENT
  Sex: Male

DRUGS (1)
  1. TEGRETOL [Suspect]
     Route: 048

REACTIONS (1)
  - GLOMERULONEPHRITIS [None]
